FAERS Safety Report 4461350-6 (Version None)
Quarter: 2004Q3

REPORT INFORMATION
  Report Type: 
  Country: None (occurrence: None)
  Receive Date: 20040928
  Receipt Date: 20040525
  Transmission Date: 20050211
  Serious: Yes (Hospitalization)
  Sender: FDA-Public Use
  Company Number: FR-BRISTOL-MYERS SQUIBB COMPANY-12596581

PATIENT
  Age: 49 Year
  Sex: Male
  Weight: 82 kg

DRUGS (4)
  1. ELISOR [Suspect]
     Indication: HYPERCHOLESTEROLAEMIA
     Route: 048
     Dates: start: 20011201, end: 20040519
  2. ASPIRIN [Concomitant]
     Indication: CORONARY ARTERY INSUFFICIENCY
     Dates: start: 20011201
  3. SECTRAL [Concomitant]
     Indication: CORONARY ARTERY INSUFFICIENCY
     Dates: start: 20011201
  4. ISOCARD [Concomitant]

REACTIONS (5)
  - BLOOD CREATINE PHOSPHOKINASE INCREASED [None]
  - DRUG INEFFECTIVE [None]
  - FRACTURE [None]
  - JOINT DISLOCATION [None]
  - REFLEX SYMPATHETIC DYSTROPHY [None]
